FAERS Safety Report 5753015-5 (Version None)
Quarter: 2008Q2

REPORT INFORMATION
  Report Type: 
  Country: None (occurrence: None)
  Receive Date: 20080527
  Receipt Date: 20080514
  Transmission Date: 20081010
  Serious: Yes (Death)
  Sender: FDA-Public Use
  Company Number: FABR-1000211

PATIENT
  Age: 60 Year
  Sex: Female
  Weight: 50 kg

DRUGS (9)
  1. FABRAZYME [Suspect]
     Indication: FABRY'S DISEASE
     Dosage: 50 MG, Q2W, INTRAVENOUS
     Route: 042
     Dates: start: 20060623, end: 20080213
  2. PIMOBENDAN (PIMOBENDAN) [Concomitant]
  3. LOSARTAN POTASSIUM [Concomitant]
  4. DIGOXIN [Concomitant]
  5. AMIODARONE HCL [Concomitant]
  6. FUROSEMIDE [Concomitant]
  7. SPIRONOLACTONE [Concomitant]
  8. FAMOTIDINE [Concomitant]
  9. EPERISONE HYDROCHLORIDE (EPERISONE HYDROCHLORIDE) [Concomitant]

REACTIONS (1)
  - CARDIAC FAILURE [None]
